FAERS Safety Report 20586587 (Version 1)
Quarter: 2022Q1

REPORT INFORMATION
  Report Type: Spontaneous
  Country: US (occurrence: US)
  Receive Date: 20220313
  Receipt Date: 20220313
  Transmission Date: 20220423
  Serious: No
  Sender: FDA-Public Use
  Company Number: US-GALDERMA-US2022001453

PATIENT

DRUGS (3)
  1. DIFFERIN GEL [Interacting]
     Active Substance: ADAPALENE
     Indication: Product used for unknown indication
     Dosage: 1 DOSAGE FORM
     Route: 061
  2. DIFFERIN OIL CONTROL MOISTURIZER SPF 30 [Interacting]
     Active Substance: AVOBENZONE\OCTISALATE\OCTOCRYLENE
     Indication: Product used for unknown indication
     Dosage: 1 DOSAGE FORM
     Route: 061
  3. COSMETICS [Suspect]
     Active Substance: COSMETICS
     Indication: Product used for unknown indication
     Dosage: 1 DOSAGE FORM
     Route: 061

REACTIONS (1)
  - Erythema [Unknown]
